FAERS Safety Report 9027382 (Version 5)
Quarter: 2013Q2

REPORT INFORMATION
  Report Type: Spontaneous
  Country: US (occurrence: US)
  Receive Date: 20130124
  Receipt Date: 20130423
  Transmission Date: 20140414
  Serious: Yes (Hospitalization, Other)
  Sender: FDA-Public Use
  Company Number: US-009507513-1301USA009910

PATIENT
  Sex: Male

DRUGS (2)
  1. REBETOL [Suspect]
     Indication: HEPATITIS C
     Dosage: UNK,
     Route: 048
     Dates: start: 20130111, end: 20130411
  2. PEG-INTRON [Suspect]
     Indication: HEPATITIS C
     Dosage: UNK
     Dates: start: 20130111, end: 20130411

REACTIONS (26)
  - Aggression [Unknown]
  - Influenza like illness [Unknown]
  - Pyrexia [Unknown]
  - White blood cell count decreased [Unknown]
  - Influenza like illness [Unknown]
  - Chills [Unknown]
  - Pyrexia [Unknown]
  - Memory impairment [Unknown]
  - Hepatic pain [Unknown]
  - Fatigue [Unknown]
  - Vision blurred [Unknown]
  - Poor quality sleep [Unknown]
  - Mood altered [Unknown]
  - Influenza like illness [Recovered/Resolved]
  - White blood cell count decreased [Unknown]
  - Decreased appetite [Unknown]
  - Weight decreased [Unknown]
  - Anxiety [Unknown]
  - Irritability [Unknown]
  - Depression [Unknown]
  - Leukopenia [Unknown]
  - Blood disorder [Unknown]
  - Overdose [Unknown]
  - Chills [Unknown]
  - Headache [Unknown]
  - Dyspnoea [Unknown]
